FAERS Safety Report 7775451-8 (Version None)
Quarter: 2011Q3

REPORT INFORMATION
  Report Type: 
  Country: None (occurrence: None)
  Receive Date: 20110923
  Receipt Date: 20081010
  Transmission Date: 20111222
  Serious: Yes (Hospitalization, Other)
  Sender: FDA-Public Use
  Company Number: JP-PFIZER INC-2008067194

PATIENT
  Sex: Male

DRUGS (14)
  1. MIGLITOL [Suspect]
     Indication: TYPE 2 DIABETES MELLITUS
     Dosage: 150 MG, DAILY
     Route: 048
     Dates: start: 20070309, end: 20070410
  2. URSO 250 [Concomitant]
     Dosage: 300 MG, UNK
     Route: 048
     Dates: start: 19970726, end: 20070410
  3. VERAPAMIL HCL [Concomitant]
     Dosage: 80 MG, UNK
     Route: 048
     Dates: start: 20020410, end: 20070410
  4. CARVEDILOL [Concomitant]
     Dosage: 10 MG, UNK
     Route: 048
     Dates: start: 20060206, end: 20070410
  5. ADALAT [Concomitant]
     Dosage: 40 MG, UNK
     Route: 048
     Dates: start: 20070105, end: 20070410
  6. METFORMIN HCL [Concomitant]
     Indication: TYPE 2 DIABETES MELLITUS
     Dosage: 750 MG, UNK
     Route: 048
     Dates: start: 20050617, end: 20070410
  7. GLYCYRON [Concomitant]
     Dosage: DOSE: 6 DF
     Route: 048
     Dates: start: 20050114, end: 20070410
  8. ASPIRIN [Concomitant]
     Dosage: 200 MG, UNK
     Route: 048
     Dates: start: 20060407, end: 20070410
  9. GLYBURIDE [Concomitant]
     Indication: TYPE 2 DIABETES MELLITUS
     Dosage: 7.5 MG, UNK
     Route: 048
     Dates: start: 20040827, end: 20070410
  10. SODIUM ALGINATE [Concomitant]
     Dosage: 40 ML, UNK
     Route: 048
     Dates: start: 20070105, end: 20070410
  11. LANSOPRAZOLE [Concomitant]
     Dosage: 15 MG, UNK
     Route: 048
     Dates: start: 20030327, end: 20070410
  12. TICLOPIDINE HCL [Concomitant]
     Dosage: 200 MG, UNK
     Route: 048
     Dates: start: 20060407, end: 20070410
  13. LASIX [Concomitant]
     Dosage: 20 MG, UNK
     Route: 048
     Dates: start: 20070105, end: 20070410
  14. MIGLITOL [Suspect]
     Dosage: 150 MG, DAILY
     Route: 048
     Dates: start: 20071019

REACTIONS (1)
  - COLITIS ISCHAEMIC [None]
